FAERS Safety Report 18689642 (Version 1)
Quarter: 2020Q4

REPORT INFORMATION
  Report Type: Spontaneous
  Country: FR (occurrence: FR)
  Receive Date: 20201231
  Receipt Date: 20201231
  Transmission Date: 20210114
  Serious: Yes (Hospitalization)
  Sender: FDA-Public Use
  Company Number: FR-009507513-2012FRA013402

PATIENT
  Age: 89 Year
  Sex: Female
  Weight: 46 kg

DRUGS (2)
  1. JANUVIA [Suspect]
     Active Substance: SITAGLIPTIN PHOSPHATE
     Indication: TYPE 2 DIABETES MELLITUS
     Dosage: 50 MILLIGRAM, QD
     Route: 048
     Dates: start: 20201204, end: 20201207
  2. RITUXIMAB. [Suspect]
     Active Substance: RITUXIMAB
     Indication: COLD TYPE HAEMOLYTIC ANAEMIA
     Route: 041
     Dates: start: 20200525, end: 20200618

REACTIONS (2)
  - Agranulocytosis [Recovering/Resolving]
  - Granulocytes maturation arrest [Recovering/Resolving]

NARRATIVE: CASE EVENT DATE: 20201207
